FAERS Safety Report 18614537 (Version 1)
Quarter: 2020Q4

REPORT INFORMATION
  Report Type: Spontaneous
  Country: US (occurrence: US)
  Receive Date: 20201214
  Receipt Date: 20201214
  Transmission Date: 20210114
  Serious: No
  Sender: FDA-Public Use
  Company Number: US-ABBVIE-19K-163-3160556-00

PATIENT
  Age: 82 Year
  Sex: Female
  Weight: 41 kg

DRUGS (2)
  1. IMBRUVICA [Suspect]
     Active Substance: IBRUTINIB
     Indication: PRODUCT USED FOR UNKNOWN INDICATION
     Dosage: 420 MG, QD
     Route: 048
  2. IMBRUVICA [Suspect]
     Active Substance: IBRUTINIB
     Dosage: UNK
     Route: 065
     Dates: start: 20190605, end: 20190702

REACTIONS (11)
  - Fatigue [Unknown]
  - Peripheral swelling [Unknown]
  - Splenomegaly [Unknown]
  - Joint swelling [Unknown]
  - Abdominal pain [Not Recovered/Not Resolved]
  - Speech disorder [Not Recovered/Not Resolved]
  - Gout [Not Recovered/Not Resolved]
  - Palpitations [Unknown]
  - Asthenia [Unknown]
  - Cognitive disorder [Unknown]
  - Bladder disorder [Unknown]

NARRATIVE: CASE EVENT DATE: 20190605
